FAERS Safety Report 7916901 (Version 5)
Quarter: 2013Q2

REPORT INFORMATION
  Report Type: Spontaneous
  Country: US (occurrence: US)
  Receive Date: 20110427
  Receipt Date: 20130531
  Transmission Date: 20140414
  Serious: Yes (Hospitalization, Other)
  Sender: FDA-Public Use
  Company Number: US-ASTRAZENECA-2010SE59108

PATIENT
  Age: 46 Year
  Sex: Male

DRUGS (4)
  1. NEXIUM [Suspect]
     Indication: GASTROOESOPHAGEAL REFLUX DISEASE
     Route: 048
  2. CRESTOR [Suspect]
     Indication: CARDIOVASCULAR EVENT PROPHYLAXIS
     Route: 048
  3. MORPHINE [Concomitant]
  4. NORCO [Concomitant]

REACTIONS (20)
  - Blood potassium decreased [Unknown]
  - Dehydration [Unknown]
  - Optic nerve neoplasm [Unknown]
  - Tachycardia [Unknown]
  - Sleep apnoea syndrome [Unknown]
  - Supraventricular tachycardia [Unknown]
  - Neoplasm [Unknown]
  - Respiratory disorder [Unknown]
  - Upper respiratory tract infection [Unknown]
  - Back injury [Unknown]
  - Tooth infection [Unknown]
  - Localised oedema [Unknown]
  - Pharyngeal oedema [Unknown]
  - Tooth impacted [Unknown]
  - Pain [Unknown]
  - Ear disorder [Unknown]
  - Adverse event [Unknown]
  - Abdominal pain lower [Unknown]
  - Chronic obstructive pulmonary disease [Unknown]
  - Attention deficit/hyperactivity disorder [Unknown]
